FAERS Safety Report 20053495 (Version 6)
Quarter: 2025Q3

REPORT INFORMATION
  Report Type: Report from Study
  Country: KR (occurrence: KR)
  Receive Date: 20211110
  Receipt Date: 20250930
  Transmission Date: 20251020
  Serious: Yes (Hospitalization, Other)
  Sender: TAKEDA
  Company Number: KR-TAKEDA-2021TUS069166

PATIENT
  Age: 30 Year
  Sex: Male
  Weight: 80 kg

DRUGS (23)
  1. VEDOLIZUMAB [Suspect]
     Active Substance: VEDOLIZUMAB
     Indication: Crohn^s disease
  2. Bolgre [Concomitant]
     Dosage: UNK UNK, BID
     Dates: start: 20210524, end: 20211108
  3. PENTASA [Concomitant]
     Active Substance: MESALAMINE
     Dosage: 1 GRAM, BID
     Dates: start: 20210218, end: 20211108
  4. AZATHIOPRINE [Concomitant]
     Active Substance: AZATHIOPRINE
     Dosage: 25 MILLIGRAM, QD
     Dates: start: 20210319, end: 20211108
  5. AZATHIOPRINE [Concomitant]
     Active Substance: AZATHIOPRINE
     Dosage: 50 MILLIGRAM, QD
     Dates: start: 20210319, end: 20211108
  6. Solondo [Concomitant]
     Dosage: 10 MILLIGRAM, QOD
     Dates: start: 20210707, end: 20210718
  7. Leclean [Concomitant]
     Indication: Bowel preparation
     Dosage: 133 MILLILITER, QD
     Dates: start: 20211103, end: 20211104
  8. Leclean [Concomitant]
     Dosage: 133 MILLILITER, QD
     Dates: start: 20211107, end: 20211108
  9. AMINO ACIDS\DEXTROSE\ELECTROLYTES NOS\SOYBEAN OIL [Concomitant]
     Active Substance: AMINO ACIDS\DEXTROSE\ELECTROLYTES NOS\SOYBEAN OIL
     Indication: Nutritional supplementation
     Dosage: 1250 MILLILITER, QD
     Dates: start: 20211103, end: 20211104
  10. AMINO ACIDS\DEXTROSE\ELECTROLYTES NOS\SOYBEAN OIL [Concomitant]
     Active Substance: AMINO ACIDS\DEXTROSE\ELECTROLYTES NOS\SOYBEAN OIL
     Dosage: 1250 MILLILITER, QD
     Dates: start: 20211107, end: 20211109
  11. CHLORHEXIDINE GLUCONATE [Concomitant]
     Active Substance: CHLORHEXIDINE GLUCONATE
     Indication: Preoperative care
     Dates: start: 20211107, end: 20211108
  12. Jetiam [Concomitant]
     Indication: Prophylaxis
     Dosage: 1000 MILLIGRAM, QD
     Dates: start: 20211108, end: 20211108
  13. TRAMADOL HCL [Concomitant]
     Active Substance: TRAMADOL HYDROCHLORIDE
     Indication: Postoperative analgesia
     Dosage: 50 MILLIGRAM, BID
     Dates: start: 20211108, end: 20211108
  14. TRAMADOL HCL [Concomitant]
     Active Substance: TRAMADOL HYDROCHLORIDE
     Dosage: 50 MILLIGRAM, TID
     Dates: start: 20211109, end: 20211109
  15. TRAMADOL HCL [Concomitant]
     Active Substance: TRAMADOL HYDROCHLORIDE
     Dosage: 50 MILLIGRAM, QD
     Dates: start: 20211110, end: 20211110
  16. TRAMADOL HCL [Concomitant]
     Active Substance: TRAMADOL HYDROCHLORIDE
     Dosage: 50 MILLIGRAM, BID
     Dates: start: 20211111, end: 20211111
  17. MEPERIDINE HYDROCHLORIDE [Concomitant]
     Active Substance: MEPERIDINE HYDROCHLORIDE
     Indication: Postoperative analgesia
     Dosage: 25 MILLIGRAM, BID
     Dates: start: 20211108, end: 20211108
  18. Boryung meiact [Concomitant]
     Indication: Prophylaxis
     Dates: start: 20211108, end: 20211112
  19. PANTOPRAZOLE SODIUM [Concomitant]
     Active Substance: PANTOPRAZOLE SODIUM
     Indication: Prophylaxis against gastrointestinal ulcer
     Dosage: 40 MILLIGRAM, QD
     Dates: start: 20211110, end: 20211115
  20. Ketocin [Concomitant]
     Indication: Postoperative analgesia
     Dosage: 60 MILLIGRAM, QD
     Dates: start: 20211110, end: 20211110
  21. Dong a gaster [Concomitant]
     Indication: Prophylaxis against gastrointestinal ulcer
     Dosage: 20 MILLIGRAM, QD
     Dates: start: 20211102, end: 20211103
  22. Dong a gaster [Concomitant]
     Dosage: 20 MILLIGRAM, BID
     Dates: start: 20211107, end: 20211109
  23. AMINO ACIDS\DEXTROSE\ELECTROLYTES NOS\SOYBEAN OIL [Concomitant]
     Active Substance: AMINO ACIDS\DEXTROSE\ELECTROLYTES NOS\SOYBEAN OIL
     Indication: Nutritional supplementation
     Dosage: 1448 MILLILITER, QD
     Dates: start: 20211109, end: 20211115

REACTIONS (1)
  - Intestinal obstruction [Recovered/Resolved]

NARRATIVE: CASE EVENT DATE: 20210805
